FAERS Safety Report 11178910 (Version 2)
Quarter: 2016Q3

REPORT INFORMATION
  Report Type: Spontaneous
  Country: US (occurrence: US)
  Receive Date: 20150610
  Receipt Date: 20160927
  Transmission Date: 20161109
  Serious: Yes (Hospitalization)
  Sender: FDA-Public Use
  Company Number: US-MYLANLABS-2015M1018738

PATIENT

DRUGS (3)
  1. ASPIRIN                            /00002701/ [Concomitant]
     Active Substance: ASPIRIN
     Route: 065
  2. METOPROLOL. [Concomitant]
     Active Substance: METOPROLOL
     Route: 065
  3. THEOPHYLLINE [Suspect]
     Active Substance: THEOPHYLLINE ANHYDROUS
     Indication: SLEEP APNOEA SYNDROME
     Dosage: UNK
     Route: 048

REACTIONS (7)
  - Suicidal ideation [Recovered/Resolved]
  - Generalised tonic-clonic seizure [Recovered/Resolved]
  - Metabolic acidosis [Recovered/Resolved]
  - Overdose [Recovered/Resolved]
  - Atrial fibrillation [Recovered/Resolved]
  - Toxicity to various agents [Recovered/Resolved]
  - Acute psychosis [Recovered/Resolved]
